FAERS Safety Report 11483446 (Version 2)
Quarter: 2015Q3

REPORT INFORMATION
  Report Type: Spontaneous
  Country: US (occurrence: US)
  Receive Date: 20150903
  Receipt Date: 20150903
  Transmission Date: 20151125
  Serious: No
  Sender: FDA-Public Use
  Company Number: US-ELI_LILLY_AND_COMPANY-US201204005183

PATIENT
  Age: 43 Year
  Sex: Female

DRUGS (3)
  1. CYMBALTA [Suspect]
     Active Substance: DULOXETINE HYDROCHLORIDE
     Dosage: 60 MG, QD
  2. CYMBALTA [Suspect]
     Active Substance: DULOXETINE HYDROCHLORIDE
     Dosage: 60 MG, QD
  3. CYMBALTA [Suspect]
     Active Substance: DULOXETINE HYDROCHLORIDE
     Indication: PAIN
     Dosage: 30 MG, BID

REACTIONS (8)
  - Off label use [Not Recovered/Not Resolved]
  - Suspected counterfeit product [Recovered/Resolved]
  - Constipation [Not Recovered/Not Resolved]
  - Product tampering [Recovered/Resolved]
  - Pain [Recovering/Resolving]
  - Dry mouth [Unknown]
  - Headache [Unknown]
  - Dysgeusia [Unknown]

NARRATIVE: CASE EVENT DATE: 20120325
